FAERS Safety Report 7662409-2 (Version None)
Quarter: 2011Q3

REPORT INFORMATION
  Report Type: 
  Country: None (occurrence: None)
  Receive Date: 20110805
  Receipt Date: 20101215
  Transmission Date: 20111222
  Serious: No
  Sender: FDA-Public Use
  Company Number: US-ABBOTT-10P-163-0691698-00

PATIENT
  Sex: Female
  Weight: 70.824 kg

DRUGS (5)
  1. NIASPAN [Suspect]
     Dosage: AT BEDTIME
  2. NIASPAN [Suspect]
     Dosage: AT BEDTIME
  3. NIASPAN [Suspect]
     Indication: PRODUCT USED FOR UNKNOWN INDICATION
     Dosage: AT BEDTIME
     Dates: start: 20101101
  4. RED YEAST RICE [Concomitant]
     Indication: PRODUCT USED FOR UNKNOWN INDICATION
  5. ENDERAL [Concomitant]
     Indication: PRODUCT USED FOR UNKNOWN INDICATION

REACTIONS (7)
  - URTICARIA [None]
  - VOMITING [None]
  - PRURITUS [None]
  - DYSURIA [None]
  - NAUSEA [None]
  - PARAESTHESIA [None]
  - DIZZINESS [None]
